FAERS Safety Report 9475008 (Version 4)
Quarter: 2014Q1

REPORT INFORMATION
  Report Type: Spontaneous
  Country: GB (occurrence: GB)
  Receive Date: 20130824
  Receipt Date: 20140101
  Transmission Date: 20141002
  Serious: Yes (Other)
  Sender: FDA-Public Use
  Company Number: GB-009507513-1308GBR006489

PATIENT
  Age: 21 Year
  Sex: Female

DRUGS (2)
  1. IMPLANON [Suspect]
     Dosage: UNK
     Route: 059
     Dates: start: 201108, end: 20130812
  2. IMPLANON [Suspect]
     Dosage: UNK
     Route: 059
     Dates: start: 2013

REACTIONS (6)
  - Abortion spontaneous [Unknown]
  - Surgery [Unknown]
  - Unintended pregnancy [Recovered/Resolved]
  - Malaise [Unknown]
  - Haemorrhage [Unknown]
  - Amenorrhoea [Unknown]
